FAERS Safety Report 23951937 (Version 3)
Quarter: 2024Q3

REPORT INFORMATION
  Report Type: Spontaneous
  Country: US (occurrence: US)
  Receive Date: 20240607
  Receipt Date: 20240706
  Transmission Date: 20241017
  Serious: No
  Sender: AMGEN
  Company Number: US-AMGEN-USASP2024109358

PATIENT
  Age: 64 Year
  Sex: Male

DRUGS (4)
  1. CORLANOR [Suspect]
     Active Substance: IVABRADINE HYDROCHLORIDE
     Indication: Cardiac failure
     Dosage: 5 MILLIGRAM, BID
     Route: 065
     Dates: start: 202305
  2. CORLANOR [Suspect]
     Active Substance: IVABRADINE HYDROCHLORIDE
     Dosage: 5 MILLIGRAM, QD
     Route: 065
     Dates: start: 2024
  3. METOPROLOL [Concomitant]
     Active Substance: METOPROLOL
     Indication: Cardiac failure
     Dosage: 100 MILLIGRAM (IN THE MORNING)
     Dates: start: 2023
  4. METOPROLOL [Concomitant]
     Active Substance: METOPROLOL
     Dosage: 50 MILLIGRAM (IN THE EVENING)
     Dates: start: 2023

REACTIONS (5)
  - Hypotension [Unknown]
  - Fatigue [Unknown]
  - Heart rate increased [Unknown]
  - Intentional product misuse [Unknown]
  - Product preparation error [Unknown]

NARRATIVE: CASE EVENT DATE: 20240101
